FAERS Safety Report 4360823-4 (Version None)
Quarter: 2004Q2

REPORT INFORMATION
  Report Type: 
  Country: None (occurrence: None)
  Receive Date: 20040517
  Receipt Date: 20040430
  Transmission Date: 20050107
  Serious: Yes (Other)
  Sender: FDA-Public Use
  Company Number: S04-UKI-01946-01

PATIENT
  Age: 48 Year
  Sex: Female

DRUGS (1)
  1. CIPRALEX (ESCITALOPRAM) [Suspect]
     Indication: DEPRESSION
     Dosage: 1 TABLET QD PO
     Route: 048
     Dates: start: 20040422, end: 20040423

REACTIONS (2)
  - ANXIETY [None]
  - REBOUND EFFECT [None]
